FAERS Safety Report 21627880 (Version 2)
Quarter: 2022Q4

REPORT INFORMATION
  Report Type: Report from Study
  Country: GR (occurrence: GR)
  Receive Date: 20221122
  Receipt Date: 20221128
  Transmission Date: 20230113
  Serious: Yes (Hospitalization)
  Sender: FDA-Public Use
  Company Number: GR-ABBVIE-22K-066-4497142-00

PATIENT
  Age: 79 Year
  Sex: Male
  Weight: 96 kg

DRUGS (11)
  1. CARBIDOPA\LEVODOPA [Suspect]
     Active Substance: CARBIDOPA\LEVODOPA
     Indication: Parkinson^s disease
     Dosage: MORNING DOSE: 10.0ML; CONTINUOUS RATE: 1.8ML/H; EXTRA DOSE: 0.7ML
     Route: 050
     Dates: start: 20220629
  2. CARBIDOPA\LEVODOPA [Suspect]
     Active Substance: CARBIDOPA\LEVODOPA
     Dosage: MORNING DOSE: 10.0ML; CONTINUOUS RATE: 1.8ML/H; EXTRA DOSE: 0.7ML
     Route: 050
  3. CARBIDOPA\LEVODOPA [Suspect]
     Active Substance: CARBIDOPA\LEVODOPA
     Dosage: MORNING DOSE: 10.0ML; CONTINUOUS RATE: 1.8ML/H; EXTRA DOSE: 0.7ML
     Route: 050
  4. CARBIDOPA\LEVODOPA [Suspect]
     Active Substance: CARBIDOPA\LEVODOPA
     Dosage: MORNING DOSE: 10.0ML; CONTINUOUS RATE: 2.4ML/H; EXTRA DOSE: 0.7ML
     Route: 050
  5. donepezil (Dozilax) [Concomitant]
     Indication: Dementia
     Route: 048
  6. clozapine (Leponex) [Concomitant]
     Indication: Hallucination
     Route: 048
  7. ELIQUIS [Concomitant]
     Active Substance: APIXABAN
     Indication: Product used for unknown indication
     Route: 048
  8. ALMERZAC [Concomitant]
     Indication: Product used for unknown indication
     Route: 048
  9. ELIQUIS [Concomitant]
     Active Substance: APIXABAN
     Indication: Product used for unknown indication
     Route: 048
  10. DOZILAX [Concomitant]
     Indication: Product used for unknown indication
     Route: 048
  11. B-MAG [Concomitant]
     Indication: Product used for unknown indication
     Route: 048

REACTIONS (12)
  - Urinary tract infection [Recovered/Resolved]
  - Tremor [Recovered/Resolved]
  - Pyrexia [Recovered/Resolved]
  - Muscle rigidity [Not Recovered/Not Resolved]
  - Urinary tract infection [Unknown]
  - Infection [Recovered/Resolved]
  - Bedridden [Not Recovered/Not Resolved]
  - Communication disorder [Not Recovered/Not Resolved]
  - Urinary tract infection [Recovered/Resolved]
  - Urinary tract infection [Recovered/Resolved]
  - On and off phenomenon [Not Recovered/Not Resolved]
  - Mobility decreased [Not Recovered/Not Resolved]

NARRATIVE: CASE EVENT DATE: 20220803
